FAERS Safety Report 5445344-X (Version None)
Quarter: 2007Q3

REPORT INFORMATION
  Report Type: 
  Country: None (occurrence: None)
  Receive Date: 20070906
  Receipt Date: 20070514
  Transmission Date: 20080115
  Serious: No
  Sender: FDA-Public Use
  Company Number: A0651221A

PATIENT
  Age: 56 Year
  Sex: Female

DRUGS (5)
  1. REQUIP [Suspect]
     Indication: RESTLESS LEGS SYNDROME
     Dosage: 1MG PER DAY
     Route: 048
     Dates: start: 20070416
  2. AVANDIA [Concomitant]
  3. LOTREL [Concomitant]
  4. ZOCOR [Concomitant]
  5. PAXIL [Concomitant]

REACTIONS (1)
  - TEMPERATURE INTOLERANCE [None]
